FAERS Safety Report 14451615 (Version 5)
Quarter: 2018Q2

REPORT INFORMATION
  Report Type: Spontaneous
  Country: US (occurrence: US)
  Receive Date: 20180129
  Receipt Date: 20180412
  Transmission Date: 20180711
  Serious: Yes (Other)
  Sender: FDA-Public Use
  Company Number: US-PFIZER INC-2018004118

PATIENT
  Age: 60 Year
  Sex: Female

DRUGS (10)
  1. ZYRTEC [Concomitant]
     Active Substance: CETIRIZINE HYDROCHLORIDE
     Dosage: UNK
  2. GABAPENTIN. [Concomitant]
     Active Substance: GABAPENTIN
     Dosage: UNK
  3. FLONASE [Concomitant]
     Active Substance: FLUTICASONE PROPIONATE
     Dosage: UNK
  4. SUTENT [Suspect]
     Active Substance: SUNITINIB MALATE
     Indication: MALIGNANT NEOPLASM OF THYMUS
     Dosage: 37.5 MG, CYCLIC (2 WEEKS ON/1 WEEK OFF)
     Dates: start: 20180105
  5. ASPIRIN. [Concomitant]
     Active Substance: ASPIRIN
     Dosage: UNK
  6. SUTENT [Suspect]
     Active Substance: SUNITINIB MALATE
     Dosage: 25 MG, CYCLIC, (2 WEEKS ON/1 WEEK OFF)
     Dates: start: 20180311
  7. CYMBALTA [Concomitant]
     Active Substance: DULOXETINE HYDROCHLORIDE
     Dosage: UNK
  8. PRILOSEC [Concomitant]
     Active Substance: OMEPRAZOLE MAGNESIUM
     Dosage: UNK
  9. VOLTAREN [Concomitant]
     Active Substance: DICLOFENAC SODIUM
     Dosage: UNK
  10. ALBUTEROL. [Concomitant]
     Active Substance: ALBUTEROL
     Dosage: UNK

REACTIONS (25)
  - Pruritus [Unknown]
  - Nausea [Unknown]
  - Oral pain [Unknown]
  - Dry skin [Unknown]
  - Swelling face [Unknown]
  - Eye swelling [Unknown]
  - Hepatic enzyme increased [Unknown]
  - Product use in unapproved indication [Unknown]
  - Oropharyngeal pain [Unknown]
  - Oral discomfort [Unknown]
  - Tongue discomfort [Unknown]
  - Fatigue [Not Recovered/Not Resolved]
  - Glossodynia [Unknown]
  - Throat irritation [Unknown]
  - Superior vena cava syndrome [Recovered/Resolved]
  - Abdominal pain upper [Unknown]
  - Peripheral swelling [Recovering/Resolving]
  - Oesophagitis [Unknown]
  - Dyspepsia [Unknown]
  - Stomatitis [Unknown]
  - Diarrhoea [Not Recovered/Not Resolved]
  - Constipation [Unknown]
  - Mucous stools [Unknown]
  - Flatulence [Recovering/Resolving]
  - Headache [Unknown]
